FAERS Safety Report 10006774 (Version 1)
Quarter: 2014Q1

REPORT INFORMATION
  Report Type: Spontaneous
  Country: US (occurrence: None)
  Receive Date: 20140312
  Receipt Date: 20140312
  Transmission Date: 20141002
  Serious: Yes (Other)
  Sender: FDA-Public Use
  Company Number: None

PATIENT
  Age: 71 Year
  Sex: Female
  Weight: 89.81 kg

DRUGS (2)
  1. TELMISARTAN [Suspect]
     Indication: HYPERTENSION
     Dosage: 80 MG 1 TAB DAILY BY MOUTH
     Route: 048
     Dates: start: 20140302, end: 20140305
  2. MICARDIS [Concomitant]

REACTIONS (6)
  - Malaise [None]
  - Influenza like illness [None]
  - Flatulence [None]
  - Nausea [None]
  - Abdominal pain upper [None]
  - Gastrointestinal disorder [None]
